FAERS Safety Report 9845168 (Version 2)
Quarter: 2014Q1

REPORT INFORMATION
  Report Type: Spontaneous
  Country: CH (occurrence: CH)
  Receive Date: 20140127
  Receipt Date: 20140127
  Transmission Date: 20141002
  Serious: Yes (Hospitalization, Disabling, Other)
  Sender: FDA-Public Use
  Company Number: CH-ABBVIE-13X-151-1060622-00

PATIENT
  Age: 45 Year
  Sex: Male
  Weight: 76 kg

DRUGS (18)
  1. KLACID [Suspect]
     Indication: DUODENAL ULCER
     Route: 048
     Dates: start: 20130207, end: 20130214
  2. OMEZOLE [Suspect]
     Indication: DUODENAL ULCER
     Route: 048
     Dates: start: 20130207, end: 20130214
  3. NEXIUM [Suspect]
     Indication: DUODENAL ULCER
     Route: 048
     Dates: start: 20130122, end: 20130123
  4. NEXIUM [Suspect]
     Dosage: 8 MG / HOURS
     Route: 042
     Dates: start: 20130123, end: 20130126
  5. NEXIUM [Suspect]
     Route: 048
     Dates: start: 20130126, end: 20130201
  6. NEXIUM [Suspect]
     Route: 048
     Dates: start: 20130202, end: 20130206
  7. FLAGYL [Suspect]
     Indication: DUODENAL ULCER
     Route: 048
     Dates: start: 20130207, end: 20130214
  8. MABTHERA [Suspect]
     Indication: HAEMOLYTIC URAEMIC SYNDROME
     Route: 041
     Dates: start: 20130129, end: 20130129
  9. MABTHERA [Suspect]
     Route: 041
     Dates: start: 20130207, end: 20130207
  10. MABTHERA [Suspect]
     Route: 041
     Dates: start: 20130214, end: 20130214
  11. DAFALGAN [Suspect]
     Indication: PRODUCT USED FOR UNKNOWN INDICATION
     Dosage: ABOUT 2X500MG PER DAY; 2 DAYS
     Route: 048
     Dates: start: 20130110, end: 20130112
  12. DAFALGAN [Suspect]
     Route: 048
     Dates: start: 20130112, end: 20130122
  13. DAFALGAN [Suspect]
     Route: 048
     Dates: end: 20130214
  14. DAFALGAN [Suspect]
     Route: 048
     Dates: start: 20130216, end: 20130217
  15. DAFALGAN [Suspect]
     Dosage: 1-2X 500MG; 1-2/ DAY
     Route: 048
     Dates: start: 20130218
  16. PREDNISONE [Concomitant]
     Indication: HAEMOLYTIC URAEMIC SYNDROME
     Route: 048
     Dates: start: 20130122, end: 20130217
  17. SOLU-MEDROL [Concomitant]
     Indication: HAEMOLYTIC URAEMIC SYNDROME
     Route: 042
     Dates: start: 20130217
  18. FOLIC ACID [Concomitant]
     Indication: PRODUCT USED FOR UNKNOWN INDICATION
     Route: 048
     Dates: start: 20130122

REACTIONS (24)
  - Conjunctivitis [Recovered/Resolved with Sequelae]
  - Toxic epidermal necrolysis [Recovered/Resolved with Sequelae]
  - Periorbital oedema [Unknown]
  - Aphthous stomatitis [Unknown]
  - Influenza like illness [Unknown]
  - Erythema [Unknown]
  - Toxic epidermal necrolysis [Recovered/Resolved with Sequelae]
  - Enanthema [Unknown]
  - Blister [Unknown]
  - Skin lesion [Unknown]
  - Pneumonia [Recovered/Resolved]
  - Dysphonia [Unknown]
  - Gastrointestinal haemorrhage [Unknown]
  - Staphylococcal infection [Recovered/Resolved]
  - Duodenal ulcer [Unknown]
  - Laryngeal ulceration [Unknown]
  - Staphylococcal infection [Unknown]
  - Vocal cord disorder [Unknown]
  - Klebsiella infection [Recovered/Resolved]
  - Staphylococcal infection [Recovered/Resolved]
  - Bacterial disease carrier [Recovered/Resolved]
  - Eye disorder [Unknown]
  - Wheezing [Unknown]
  - Tachycardia [Unknown]
